FAERS Safety Report 15805818 (Version 2)
Quarter: 2019Q1

REPORT INFORMATION
  Report Type: Spontaneous
  Country: US (occurrence: US)
  Receive Date: 20190110
  Receipt Date: 20190313
  Transmission Date: 20190417
  Serious: Yes (Other)
  Sender: FDA-Public Use
  Company Number: US-SA-2019SA004905

PATIENT
  Age: 61 Year
  Sex: Female
  Weight: 70 kg

DRUGS (4)
  1. COREG CR [Concomitant]
     Active Substance: CARVEDILOL PHOSPHATE
  2. TAXOTERE [Suspect]
     Active Substance: DOCETAXEL
     Dosage: 145 MG, Q3W
     Route: 042
     Dates: start: 20110615, end: 20110615
  3. PARAPLATIN [Concomitant]
     Active Substance: CARBOPLATIN
     Dosage: UNK
  4. TAXOTERE [Suspect]
     Active Substance: DOCETAXEL
     Indication: BREAST CANCER FEMALE
     Dosage: 145 MG, Q3W
     Route: 042
     Dates: start: 20110302, end: 20110302

REACTIONS (1)
  - Alopecia [Recovering/Resolving]

NARRATIVE: CASE EVENT DATE: 201104
